FAERS Safety Report 9231219 (Version 5)
Quarter: 2017Q1

REPORT INFORMATION
  Report Type: Report from Study
  Country: CA (occurrence: CA)
  Receive Date: 20130415
  Receipt Date: 20170307
  Transmission Date: 20170429
  Serious: Yes (Other)
  Sender: FDA-Public Use
  Company Number: CA-UCBSA-082898

PATIENT
  Age: 77 Year
  Sex: Male

DRUGS (12)
  1. CERTOLIZUMAB PEGOL RA [Suspect]
     Active Substance: CERTOLIZUMAB PEGOL
     Dosage: WEEKS: 0-2-4
     Route: 058
     Dates: start: 20121108, end: 20121206
  2. PANTOLOC [Concomitant]
     Active Substance: PANTOPRAZOLE SODIUM
     Indication: PRODUCT USED FOR UNKNOWN INDICATION
     Dosage: UNKNOWN DOSE
  3. CENTRUM [Concomitant]
     Active Substance: VITAMINS
     Indication: PRODUCT USED FOR UNKNOWN INDICATION
     Dosage: UNKNOWN DOSE
  4. DIVALPROEX [Concomitant]
     Active Substance: DIVALPROEX SODIUM
     Indication: PRODUCT USED FOR UNKNOWN INDICATION
     Dosage: UNKNOWN DOSE
  5. ARAVA [Suspect]
     Active Substance: LEFLUNOMIDE
     Indication: RHEUMATOID ARTHRITIS
     Dosage: DOSE PER INTAKE: 20 MG
     Route: 048
     Dates: start: 201301
  6. PREDNISONE. [Suspect]
     Active Substance: PREDNISONE
     Dosage: DOSE PER INTAKE :12 MG
     Route: 048
     Dates: start: 1998
  7. PREDNISONE. [Suspect]
     Active Substance: PREDNISONE
     Indication: RHEUMATOID ARTHRITIS
     Dosage: 20 MG, ONCE DAILY (QD)
     Route: 048
  8. FOSAMAX [Concomitant]
     Active Substance: ALENDRONATE SODIUM
     Indication: PRODUCT USED FOR UNKNOWN INDICATION
     Dosage: UNKNOWN DOSE
  9. ELTROXIN [Concomitant]
     Active Substance: LEVOTHYROXINE
     Indication: PRODUCT USED FOR UNKNOWN INDICATION
     Dosage: UNKNOWN DOSE
  10. CERTOLIZUMAB PEGOL RA [Suspect]
     Active Substance: CERTOLIZUMAB PEGOL
     Indication: RHEUMATOID ARTHRITIS
     Dosage: 200 MG, EV 2 WEEKS(QOW)
     Route: 058
     Dates: start: 20121220, end: 2013
  11. SAW PALMETTO [Concomitant]
     Active Substance: SAW PALMETTO
     Indication: PRODUCT USED FOR UNKNOWN INDICATION
     Dosage: UNKNOWN DOSE
  12. CALTRATE [Concomitant]
     Active Substance: CALCIUM CARBONATE
     Indication: PRODUCT USED FOR UNKNOWN INDICATION
     Dosage: UNKNOWN DOSE

REACTIONS (3)
  - Localised infection [Not Recovered/Not Resolved]
  - Urinary tract infection [Not Recovered/Not Resolved]
  - Pneumonia [Recovered/Resolved with Sequelae]

NARRATIVE: CASE EVENT DATE: 201303
